FAERS Safety Report 6364597-7 (Version None)
Quarter: 2009Q3

REPORT INFORMATION
  Report Type: 
  Country: None (occurrence: None)
  Receive Date: 20090919
  Receipt Date: 20090723
  Transmission Date: 20100115
  Serious: No
  Sender: FDA-Public Use
  Company Number: US-ABBOTT-09P-163-0587735-00

PATIENT
  Age: 69 Year
  Sex: Male

DRUGS (3)
  1. HUMIRA [Suspect]
     Indication: CROHN'S DISEASE
     Dosage: 160MG LOADING DOSE; 4 PENS
     Route: 058
     Dates: start: 20090701, end: 20090701
  2. HUMIRA [Suspect]
     Dosage: 2 PENS FOR 2ND DOSE = 80MG
     Route: 058
     Dates: start: 20090716, end: 20090716
  3. HUMIRA [Suspect]
     Route: 058

REACTIONS (1)
  - OEDEMA PERIPHERAL [None]
